FAERS Safety Report 11645595 (Version 5)
Quarter: 2016Q1

REPORT INFORMATION
  Report Type: Spontaneous
  Country: IN (occurrence: IN)
  Receive Date: 20151020
  Receipt Date: 20160307
  Transmission Date: 20160525
  Serious: Yes (Hospitalization)
  Sender: FDA-Public Use
  Company Number: IN-PFIZER INC-2015284694

PATIENT
  Age: 50 Year
  Sex: Male

DRUGS (3)
  1. SUTENT [Suspect]
     Active Substance: SUNITINIB MALATE
     Indication: METASTATIC RENAL CELL CARCINOMA
     Dosage: 50 MG, 1X/DAY
     Route: 048
     Dates: start: 20150710, end: 201508
  2. SUTENT [Suspect]
     Active Substance: SUNITINIB MALATE
     Dosage: 37.5 UNK, UNK
     Route: 048
     Dates: start: 20160204
  3. SUTENT [Suspect]
     Active Substance: SUNITINIB MALATE
     Dosage: 50 MG, 1X/DAY
     Route: 048
     Dates: start: 20150902, end: 20160111

REACTIONS (19)
  - Deep vein thrombosis [Recovering/Resolving]
  - Heart rate abnormal [Unknown]
  - Oral mucosal blistering [Recovered/Resolved]
  - Palmar-plantar erythrodysaesthesia syndrome [Not Recovered/Not Resolved]
  - Upper respiratory tract congestion [Not Recovered/Not Resolved]
  - Oropharyngeal pain [Recovered/Resolved]
  - Skin infection [Unknown]
  - Feeding disorder [Unknown]
  - Blood pressure decreased [Recovered/Resolved]
  - Gait disturbance [Unknown]
  - Hyperchlorhydria [Not Recovered/Not Resolved]
  - Nasopharyngitis [Not Recovered/Not Resolved]
  - Mouth ulceration [Unknown]
  - Cough [Not Recovered/Not Resolved]
  - Mouth ulceration [Not Recovered/Not Resolved]
  - Hypotension [Unknown]
  - Gingival bleeding [Not Recovered/Not Resolved]
  - Swelling face [Unknown]
  - Ageusia [Unknown]

NARRATIVE: CASE EVENT DATE: 2015
